FAERS Safety Report 6036805-3 (Version None)
Quarter: 2009Q1

REPORT INFORMATION
  Report Type: 
  Country: None (occurrence: None)
  Receive Date: 20090114
  Receipt Date: 20090106
  Transmission Date: 20090719
  Serious: Yes (Other)
  Sender: FDA-Public Use
  Company Number: US-BAYER-200910054BCC

PATIENT
  Age: 67 Year
  Sex: Male
  Weight: 91 kg

DRUGS (2)
  1. ASPIRIN [Suspect]
     Indication: ISCHAEMIC HEART DISEASE PROPHYLAXIS
     Dosage: TOTAL DAILY DOSE: 81 MG  UNIT DOSE: 81 MG
     Route: 048
     Dates: start: 20080101, end: 20090106
  2. LISINOPRIL [Concomitant]

REACTIONS (5)
  - BLOOD PRESSURE DIASTOLIC DECREASED [None]
  - CONTUSION [None]
  - FALL [None]
  - MUSCLE SPASMS [None]
  - SYNCOPE [None]
